FAERS Safety Report 11146400 (Version 2)
Quarter: 2015Q2

REPORT INFORMATION
  Report Type: Spontaneous
  Country: US (occurrence: US)
  Receive Date: 20150528
  Receipt Date: 20150624
  Transmission Date: 20150821
  Serious: No
  Sender: FDA-Public Use
  Company Number: US-PFIZER INC-2015168277

PATIENT
  Age: 78 Year
  Sex: Female
  Weight: 73 kg

DRUGS (5)
  1. ALAVERT ALLERGY [Suspect]
     Active Substance: LORATADINE
     Indication: RHINORRHOEA
  2. ALAVERT ALLERGY [Suspect]
     Active Substance: LORATADINE
     Indication: HYPERSENSITIVITY
     Dosage: 10 MG, 1X/DAY
     Dates: start: 20150501, end: 20150605
  3. ALAVERT ALLERGY [Suspect]
     Active Substance: LORATADINE
     Indication: OROPHARYNGEAL PAIN
  4. METOPROLOL [Concomitant]
     Active Substance: METOPROLOL
     Indication: BLOOD PRESSURE
     Dosage: 100 MG, 2X/DAY
     Dates: start: 2000
  5. ALAVERT ALLERGY [Suspect]
     Active Substance: LORATADINE
     Indication: COUGH

REACTIONS (1)
  - Drug ineffective [Not Recovered/Not Resolved]

NARRATIVE: CASE EVENT DATE: 20150501
